FAERS Safety Report 7550057-4 (Version None)
Quarter: 2011Q2

REPORT INFORMATION
  Report Type: 
  Country: None (occurrence: None)
  Receive Date: 20110615
  Receipt Date: 20110613
  Transmission Date: 20111010
  Serious: Yes (Other)
  Sender: FDA-Public Use
  Company Number: CHPA2011US07957

PATIENT
  Age: 100 Year
  Sex: Female
  Weight: 65.76 kg

DRUGS (2)
  1. BENEFIBER W/ WHEAT DEXTRIN [Suspect]
     Indication: MEDICAL DIET
     Dosage: 2 TSP, TID
     Route: 048
     Dates: start: 20110101
  2. COLACE [Concomitant]
     Dosage: 1 DF, TID
     Route: 048

REACTIONS (1)
  - COLONIC OBSTRUCTION [None]
